FAERS Safety Report 4313261-4 (Version None)
Quarter: 2004Q1

REPORT INFORMATION
  Report Type: 
  Country: None (occurrence: None)
  Receive Date: 20040305
  Receipt Date: 20040213
  Transmission Date: 20041129
  Serious: Yes (Hospitalization)
  Sender: FDA-Public Use
  Company Number: A-CH2003-03063

PATIENT
  Age: 58 Year
  Sex: Female
  Weight: 62 kg

DRUGS (10)
  1. TRACLEER [Suspect]
     Indication: PULMONARY HYPERTENSION
     Dosage: 62.5 MG , OD, ORAL : 62.5 MG, BID, ORAL : 31.25 MG, BID, ORAL : 62.5 MG, BID, ORAL
     Route: 048
     Dates: start: 20030518, end: 20030524
  2. TRACLEER [Suspect]
     Indication: PULMONARY HYPERTENSION
     Dosage: 62.5 MG , OD, ORAL : 62.5 MG, BID, ORAL : 31.25 MG, BID, ORAL : 62.5 MG, BID, ORAL
     Route: 048
     Dates: start: 20030525, end: 20030715
  3. TRACLEER [Suspect]
     Indication: PULMONARY HYPERTENSION
     Dosage: 62.5 MG , OD, ORAL : 62.5 MG, BID, ORAL : 31.25 MG, BID, ORAL : 62.5 MG, BID, ORAL
     Route: 048
     Dates: start: 20030801, end: 20031001
  4. TRACLEER [Suspect]
     Indication: PULMONARY HYPERTENSION
     Dosage: 62.5 MG , OD, ORAL : 62.5 MG, BID, ORAL : 31.25 MG, BID, ORAL : 62.5 MG, BID, ORAL
     Route: 048
     Dates: start: 20031001
  5. FALITHROM (PHENPROCOUMON) [Suspect]
  6. NEXIUM [Concomitant]
  7. DUSODRIL (NAFTIDROFURYL OXALATE) [Concomitant]
  8. CALCIMAGON (CALCIUM CARBONATE) [Concomitant]
  9. TOREM (TORASEMIDE) [Concomitant]
  10. FERRO-SANOL DUODENAL (FERROUS SULFATE) [Concomitant]

REACTIONS (3)
  - ANAEMIA [None]
  - GASTRITIS EROSIVE [None]
  - GASTROINTESTINAL HAEMORRHAGE [None]
